FAERS Safety Report 12708154 (Version 1)
Quarter: 2016Q3

REPORT INFORMATION
  Report Type: Spontaneous
  Country: FI (occurrence: FI)
  Receive Date: 20160901
  Receipt Date: 20160901
  Transmission Date: 20161109
  Serious: Yes (Death)
  Sender: FDA-Public Use
  Company Number: FI-ASTRAZENECA-2016SE91397

PATIENT
  Age: 29533 Day
  Sex: Male

DRUGS (8)
  1. JANUVIA [Concomitant]
     Active Substance: SITAGLIPTIN PHOSPHATE
     Indication: DIABETES MELLITUS
     Dosage: 10 UNK DAILY HOME MEDICINE
     Route: 048
  2. PRIMASPAN [Concomitant]
     Active Substance: ASPIRIN
     Indication: CORONARY ARTERY DISEASE
     Dosage: 10 UNK DAILY HOME MEDICINE
     Route: 048
  3. EMCONCOR [Concomitant]
     Active Substance: BISOPROLOL FUMARATE
     Indication: CORONARY ARTERY DISEASE
     Dosage: 1.25 DAILY HOME MEDICINE
  4. CALCICHEW-D3 FORTE [Concomitant]
     Active Substance: CALCIUM\CHOLECALCIFEROL
     Indication: OSTEOPOROSIS
     Dosage: HOME MEDICINE
     Route: 048
  5. BRILIQUE [Suspect]
     Active Substance: TICAGRELOR
     Indication: MYOCARDIAL INFARCTION
     Route: 048
     Dates: start: 20160316, end: 20160331
  6. LISIPRIL COMP [Concomitant]
     Indication: BLOOD PRESSURE ABNORMAL
     Dosage: 20/12,5 DAILY, HOME MEDICINE
     Route: 048
  7. DIFORMIN RETARD [Concomitant]
     Active Substance: METFORMIN HYDROCHLORIDE
     Indication: DIABETES MELLITUS
     Dosage: 1500 UNKN DAILY HOME MEDICINE
     Route: 048
  8. ROSUVASTATIN. [Concomitant]
     Active Substance: ROSUVASTATIN
     Indication: HYPERCHOLESTEROLAEMIA
     Dosage: 10 DAILY HOME MEDICINE
     Route: 048

REACTIONS (3)
  - Pneumonia [Fatal]
  - Diffuse alveolar damage [Fatal]
  - Respiratory failure [Fatal]

NARRATIVE: CASE EVENT DATE: 20160318
